FAERS Safety Report 5970274-4 (Version None)
Quarter: 2008Q4

REPORT INFORMATION
  Report Type: 
  Country: None (occurrence: None)
  Receive Date: 20081126
  Receipt Date: 20081119
  Transmission Date: 20090506
  Serious: Yes (Other)
  Sender: FDA-Public Use
  Company Number: US-PFIZER INC-2008098509

PATIENT
  Sex: Female
  Weight: 77.1 kg

DRUGS (2)
  1. CADUET [Suspect]
     Indication: HYPERTENSION
     Dosage: TEXT:5/80MG QD EVERY DAY, TDD:5/80MG
     Route: 048
     Dates: start: 20050101, end: 20081101
  2. CADUET [Suspect]
     Indication: BLOOD CHOLESTEROL INCREASED

REACTIONS (2)
  - MUSCLE DISORDER [None]
  - NEURALGIA [None]
